FAERS Safety Report 15386755 (Version 1)
Quarter: 2018Q3

REPORT INFORMATION
  Report Type: Spontaneous
  Country: US (occurrence: US)
  Receive Date: 20180914
  Receipt Date: 20180914
  Transmission Date: 20181010
  Serious: No
  Sender: FDA-Public Use
  Company Number: US-HORIZON-PEN-0752-2018

PATIENT
  Age: 77 Year
  Sex: Female

DRUGS (1)
  1. PENNSAID [Suspect]
     Active Substance: DICLOFENAC SODIUM
     Indication: OSTEOARTHRITIS
     Dosage: AS NEEDED

REACTIONS (4)
  - Inability to afford medication [Unknown]
  - Off label use [Unknown]
  - Arthralgia [Unknown]
  - Product availability issue [Unknown]
